FAERS Safety Report 23922593 (Version 1)
Quarter: 2024Q2

REPORT INFORMATION
  Report Type: Spontaneous
  Country: CA (occurrence: CA)
  Receive Date: 20240531
  Receipt Date: 20240531
  Transmission Date: 20240715
  Serious: Yes (Life-Threatening, Other)
  Sender: FDA-Public Use
  Company Number: CA-SA-SAC20240220000607

PATIENT
  Age: 23 Year
  Sex: Female

DRUGS (2)
  1. TUBERSOL [Suspect]
     Active Substance: TUBERCULIN PURIFIED PROTEIN DERIVATIVE
     Indication: Immunisation
     Dosage: 0.1 ML
     Route: 023
     Dates: start: 20230919
  2. CITALOPRAM [Concomitant]
     Active Substance: CITALOPRAM\CITALOPRAM HYDROBROMIDE
     Dosage: 20 MG, QD

REACTIONS (10)
  - Swelling [Unknown]
  - Tachycardia [Unknown]
  - Dysphonia [Unknown]
  - Chest discomfort [Unknown]
  - Dysphagia [Unknown]
  - Nausea [Unknown]
  - Throat tightness [Unknown]
  - Pruritus [Unknown]
  - Anaphylactic reaction [Recovered/Resolved]
  - Angioedema [Unknown]

NARRATIVE: CASE EVENT DATE: 20230919
